FAERS Safety Report 6755640-1 (Version None)
Quarter: 2010Q2

REPORT INFORMATION
  Report Type: 
  Country: None (occurrence: None)
  Receive Date: 20100604
  Receipt Date: 20100428
  Transmission Date: 20101027
  Serious: Yes (Hospitalization, Other)
  Sender: FDA-Public Use
  Company Number: US-BAYER-201013275NA

PATIENT
  Age: 18 Year
  Sex: Female
  Weight: 111 kg

DRUGS (18)
  1. YASMIN [Suspect]
     Indication: UTERINE HAEMORRHAGE
     Dosage: FROM 07-JUL-2005 TO 2007, OR FROM 2003 TO 2006, OR FROM 08-NOV-2005 (NO STOP DATE WAS INFORMED)
     Route: 048
  2. YAZ [Suspect]
     Indication: UTERINE HAEMORRHAGE
     Route: 048
     Dates: start: 20060101, end: 20090101
  3. MULTIPLE ANTIBIOTICS [Concomitant]
  4. TEGRETOL [Concomitant]
     Indication: CONVULSION
     Dates: start: 19891127
  5. ALBUTEROL [Concomitant]
     Indication: ASTHMA
     Dosage: OFF AND ON
     Route: 055
     Dates: start: 20040101
  6. NAPROXEN [Concomitant]
     Dates: start: 20080101
  7. SYNTHROID [Concomitant]
     Indication: HYPOTHYROIDISM
     Dosage: UNIT DOSE: 0.1 MG
     Dates: start: 20080122
  8. SYNTHROID [Concomitant]
     Dates: start: 20060101
  9. GLIPIZIDE [Concomitant]
     Dates: start: 20100101
  10. METFORMIN [Concomitant]
     Dates: start: 20060101
  11. HYDROXYZINE [Concomitant]
     Dates: start: 20030101
  12. ADDERALL XR 10 [Concomitant]
     Indication: ATTENTION DEFICIT/HYPERACTIVITY DISORDER
     Dates: start: 20070101
  13. CLONIDINE [Concomitant]
  14. MIRTAZAPINE [Concomitant]
  15. DEXTROAMPHETAMINE [Concomitant]
  16. CARBATROL [Concomitant]
  17. ORTHO TRI-CYCLEN [Concomitant]
     Dosage: FROM 27-APR-2009 TO 18-SEP-2009 PATIENT WAS ON THIS MEDICATION, BUT START AND STOP DATES WERE UNK
  18. PRILOSEC [Concomitant]
     Dosage: FROM 27-APR-2009 TO 18-SEP-2009 PATIENT WAS ON THIS MEDICATION, BUT START AND STOP DATES WERE UNK

REACTIONS (19)
  - ABDOMINAL PAIN [None]
  - ABDOMINAL PAIN UPPER [None]
  - ADNEXA UTERI PAIN [None]
  - AMENORRHOEA [None]
  - ARTHRALGIA [None]
  - BILIARY DYSKINESIA [None]
  - CHILLS [None]
  - CHOLECYSTITIS [None]
  - CYSTITIS [None]
  - GALLBLADDER CHOLESTEROLOSIS [None]
  - GASTRIC DISORDER [None]
  - HEADACHE [None]
  - NAUSEA [None]
  - PELVIC PAIN [None]
  - POLYCYSTIC OVARIES [None]
  - PYREXIA [None]
  - RECTAL HAEMORRHAGE [None]
  - VAGINAL HAEMORRHAGE [None]
  - VOMITING [None]
